FAERS Safety Report 10608083 (Version 2)
Quarter: 2014Q4

REPORT INFORMATION
  Report Type: Report from Study
  Country: US (occurrence: US)
  Receive Date: 20141125
  Receipt Date: 20141125
  Transmission Date: 20150529
  Serious: Yes (Hospitalization)
  Sender: FDA-Public Use
  Company Number: US-ASTRAZENECA-2014SE84055

PATIENT
  Age: 68 Year
  Sex: Male
  Weight: 115 kg

DRUGS (6)
  1. CELECOXIB;IBUPROFEN|NAPROXEN CODE NOT BROKEN [Suspect]
     Active Substance: CELECOXIB\IBUPROFEN\NAPROXEN
     Indication: OSTEOARTHRITIS
     Dosage: THREE TIMES DAILY
     Route: 048
     Dates: start: 20140410, end: 20141016
  2. CELECOXIB;IBUPROFEN|NAPROXEN CODE NOT BROKEN [Suspect]
     Active Substance: CELECOXIB\IBUPROFEN\NAPROXEN
     Indication: RHEUMATOID ARTHRITIS
     Dosage: THREE TIMES DAILY
     Route: 048
     Dates: start: 20140410, end: 20141016
  3. NEXIUM [Suspect]
     Active Substance: ESOMEPRAZOLE MAGNESIUM
     Indication: PROPHYLAXIS AGAINST GASTROINTESTINAL ULCER
     Dosage: DAILY
     Route: 048
     Dates: start: 20140410, end: 20141016
  4. MIRAPEX [Concomitant]
     Active Substance: PRAMIPEXOLE DIHYDROCHLORIDE
     Indication: RESTLESS LEGS SYNDROME
     Dates: start: 1998
  5. TRAMADOL [Concomitant]
     Active Substance: TRAMADOL
     Indication: OSTEOARTHRITIS
     Dosage: AS REQUIRED
     Dates: start: 2007
  6. GLIPIZIDE. [Concomitant]
     Active Substance: GLIPIZIDE
     Indication: TYPE 2 DIABETES MELLITUS
     Dates: start: 2010

REACTIONS (1)
  - Duodenal ulcer [Recovered/Resolved]

NARRATIVE: CASE EVENT DATE: 20141019
